FAERS Safety Report 17407229 (Version 1)
Quarter: 2020Q1

REPORT INFORMATION
  Report Type: Spontaneous
  Country: US (occurrence: US)
  Receive Date: 20200128
  Receipt Date: 20200128
  Transmission Date: 20200409
  Serious: No
  Sender: FDA-Public Use
  Company Number: None

PATIENT
  Age: 70 Year
  Sex: Female

DRUGS (1)
  1. IMATINIB 400MG  TAB (X30) [Suspect]
     Active Substance: IMATINIB
     Route: 048
     Dates: start: 20200108

REACTIONS (7)
  - Rash macular [None]
  - Taste disorder [None]
  - Abdominal pain [None]
  - Decreased appetite [None]
  - Back pain [None]
  - Night sweats [None]
  - Muscular weakness [None]

NARRATIVE: CASE EVENT DATE: 20200114
